FAERS Safety Report 8660229 (Version 2)
Quarter: 2014Q4

REPORT INFORMATION
  Report Type: Spontaneous
  Country: US (occurrence: US)
  Receive Date: 20120711
  Receipt Date: 20141030
  Transmission Date: 20150529
  Serious: Yes (Hospitalization, Other)
  Sender: FDA-Public Use
  Company Number: US-GLAXOSMITHKLINE-A0809386A

PATIENT
  Sex: Male

DRUGS (1)
  1. AVANDIA [Suspect]
     Active Substance: ROSIGLITAZONE MALEATE
     Indication: DIABETES MELLITUS
     Route: 048
     Dates: start: 20040910, end: 20071213

REACTIONS (5)
  - Cardiac failure congestive [Unknown]
  - Cerebrovascular accident [Not Recovered/Not Resolved]
  - Hypertensive heart disease [Unknown]
  - Myocardial infarction [Unknown]
  - Atrial fibrillation [Unknown]
